FAERS Safety Report 9251708 (Version 2)
Quarter: 2014Q1

REPORT INFORMATION
  Report Type: Spontaneous
  Country: US (occurrence: US)
  Receive Date: 20130424
  Receipt Date: 20140115
  Transmission Date: 20141002
  Serious: No
  Sender: FDA-Public Use
  Company Number: US-ASTRAZENECA-2013SE27194

PATIENT
  Age: 40 Year
  Sex: Male
  Weight: 99.8 kg

DRUGS (2)
  1. NEXIUM [Suspect]
     Indication: GASTROOESOPHAGEAL REFLUX DISEASE
     Route: 048
     Dates: start: 2006
  2. PEPTO BISMOL OTC [Concomitant]
     Indication: DYSPEPSIA
     Dosage: AS NEEDED
     Route: 048

REACTIONS (5)
  - Osteoporosis [Unknown]
  - Bone disorder [Unknown]
  - Lower limb fracture [Unknown]
  - Foot fracture [Unknown]
  - Ankle fracture [Unknown]
